FAERS Safety Report 4273149-4 (Version None)
Quarter: 2004Q1

REPORT INFORMATION
  Report Type: 
  Country: None (occurrence: None)
  Receive Date: 20040116
  Receipt Date: 20040112
  Transmission Date: 20041129
  Serious: Yes (Other)
  Sender: FDA-Public Use
  Company Number: FR-GLAXOSMITHKLINE-B0319587A

PATIENT
  Age: 60 Year
  Sex: Male

DRUGS (2)
  1. ZELITREX [Suspect]
     Indication: ANTIVIRAL PROPHYLAXIS
     Dosage: 500MG PER DAY
     Route: 048
  2. HYPERIUM [Concomitant]

REACTIONS (3)
  - CYTOLYTIC HEPATITIS [None]
  - DYSPNOEA [None]
  - HEPATIC ENZYME INCREASED [None]
